FAERS Safety Report 8438174-8 (Version None)
Quarter: 2012Q2

REPORT INFORMATION
  Report Type: 
  Country: None (occurrence: None)
  Receive Date: 20120614
  Receipt Date: 20120612
  Transmission Date: 20120825
  Serious: Yes (Hospitalization)
  Sender: FDA-Public Use
  Company Number: NL-ROCHE-1077417

PATIENT
  Sex: Male

DRUGS (4)
  1. FRAXODI [Concomitant]
     Dates: start: 20120608
  2. EPIRUBICIN HYDROCHLORIDE [Suspect]
     Indication: GASTRIC CANCER
     Dosage: LAST DOSE PRIOR TO SAE ON 29/MAY/2012
     Route: 042
     Dates: start: 20120418
  3. XELODA [Suspect]
     Indication: GASTRIC CANCER
     Dosage: LAST DOSE PRIOR TO SAE ON 14/JUN/2012
     Route: 048
     Dates: start: 20120418
  4. CISPLATIN [Suspect]
     Indication: GASTRIC CANCER
     Dosage: LAST DOSE PRIOR TO SAE ON 29/MAY/2012
     Route: 042
     Dates: start: 20120418

REACTIONS (1)
  - PULMONARY EMBOLISM [None]
